FAERS Safety Report 15240623 (Version 1)
Quarter: 2018Q3

REPORT INFORMATION
  Report Type: Spontaneous
  Country: US (occurrence: US)
  Receive Date: 20180804
  Receipt Date: 20180804
  Transmission Date: 20181010
  Serious: No
  Sender: FDA-Public Use
  Company Number: US-009507513-1808USA000237

PATIENT
  Sex: Female

DRUGS (8)
  1. INTRON A [Suspect]
     Active Substance: INTERFERON ALFA-2B
     Indication: PLASMACYTOMA
     Dosage: INJECT 300,000 UNITS (0.05ML) 3 TIMES A WEEK (MON, WED AND FRI) DISCARD 30 DAYS AFTER INITIAL USE
     Route: 023
  2. AUGMENTIN [Concomitant]
     Active Substance: AMOXICILLIN\CLAVULANATE POTASSIUM
     Dosage: 875?125 MG
  3. ACETAZOLAMIDE. [Concomitant]
     Active Substance: ACETAZOLAMIDE
  4. ACYCLOVIR. [Concomitant]
     Active Substance: ACYCLOVIR
  5. METHYLPRED ORAL [Concomitant]
  6. LIDO [Concomitant]
  7. DARZALEX [Concomitant]
     Active Substance: DARATUMUMAB
     Dosage: 100MG/5M
  8. ERYTHROMYCIN. [Concomitant]
     Active Substance: ERYTHROMYCIN
     Dosage: 5MG/GM

REACTIONS (4)
  - Acne [Not Recovered/Not Resolved]
  - Myalgia [Not Recovered/Not Resolved]
  - Fatigue [Not Recovered/Not Resolved]
  - Infected bite [Not Recovered/Not Resolved]
